FAERS Safety Report 5719291-X (Version None)
Quarter: 2008Q2

REPORT INFORMATION
  Report Type: 
  Country: None (occurrence: None)
  Receive Date: 20080428
  Receipt Date: 20080326
  Transmission Date: 20081010
  Serious: No
  Sender: FDA-Public Use
  Company Number: US-BAYER-200816096NA

PATIENT
  Age: 55 Year
  Sex: Male

DRUGS (7)
  1. LEVITRA [Suspect]
     Indication: DRUG USE FOR UNKNOWN INDICATION
     Dosage: TOTAL DAILY DOSE: 20 MG  UNIT DOSE: 20 MG
     Route: 048
     Dates: start: 20080303, end: 20080303
  2. VALIUM [Concomitant]
  3. ADDERALL 10 [Concomitant]
  4. ATENOLOL [Concomitant]
  5. LEXAPRO [Concomitant]
  6. WELLBUTRIN [Concomitant]
  7. ROZEREM [Concomitant]

REACTIONS (1)
  - ERECTILE DYSFUNCTION [None]
